FAERS Safety Report 23438962 (Version 1)
Quarter: 2024Q1

REPORT INFORMATION
  Report Type: Spontaneous
  Country: US (occurrence: US)
  Receive Date: 20240124
  Receipt Date: 20240124
  Transmission Date: 20240410
  Serious: Yes (Other)
  Sender: FDA-Public Use
  Company Number: US-BAYER-2024A009803

PATIENT
  Age: 66 Year
  Sex: Male

DRUGS (3)
  1. NUBEQA [Suspect]
     Active Substance: DAROLUTAMIDE
     Dosage: UNK
  2. ORGOVYX [Concomitant]
     Active Substance: RELUGOLIX
     Indication: Neoplasm malignant
     Dosage: 360 MG, QD
     Route: 048
     Dates: start: 20231122, end: 20231122
  3. ORGOVYX [Concomitant]
     Active Substance: RELUGOLIX
     Indication: Neoplasm malignant
     Dosage: 120 MG, QD
     Route: 048
     Dates: start: 20231123

REACTIONS (5)
  - Blood pressure increased [Unknown]
  - Pollakiuria [Unknown]
  - Sleep disorder [Unknown]
  - Discomfort [Unknown]
  - Fatigue [Unknown]
